FAERS Safety Report 12648871 (Version 3)
Quarter: 2016Q4

REPORT INFORMATION
  Report Type: Spontaneous
  Country: US (occurrence: US)
  Receive Date: 20160812
  Receipt Date: 20161222
  Transmission Date: 20170207
  Serious: No
  Sender: FDA-Public Use
  Company Number: US-PFIZER INC-2016384577

PATIENT
  Age: 46 Year
  Sex: Female
  Weight: 85 kg

DRUGS (20)
  1. DEXTROSE. [Suspect]
     Active Substance: DEXTROSE
     Dosage: UNK
     Route: 014
     Dates: start: 20160419
  2. PREMARIN [Concomitant]
     Active Substance: ESTROGENS, CONJUGATED
     Dosage: UNK
  3. NORCO [Concomitant]
     Active Substance: ACETAMINOPHEN\HYDROCODONE BITARTRATE
     Indication: ARTHRALGIA
     Dosage: 10-325MG
  4. LIDOCAINE HCL [Suspect]
     Active Substance: LIDOCAINE HYDROCHLORIDE
     Dosage: UNK
     Route: 014
     Dates: start: 20151216
  5. LIDOCAINE HCL [Suspect]
     Active Substance: LIDOCAINE HYDROCHLORIDE
     Dosage: UNK
     Route: 014
     Dates: start: 20160223
  6. DEXTROSE. [Suspect]
     Active Substance: DEXTROSE
     Dosage: UNK
     Route: 014
     Dates: start: 20160113
  7. DEXTROSE. [Suspect]
     Active Substance: DEXTROSE
     Dosage: UNK
     Route: 014
     Dates: start: 20160808
  8. LIDOCAINE HCL [Suspect]
     Active Substance: LIDOCAINE HYDROCHLORIDE
     Indication: SACROILIITIS
     Dosage: 1 %, UNK
     Route: 014
     Dates: start: 20150824
  9. LIDOCAINE HCL [Suspect]
     Active Substance: LIDOCAINE HYDROCHLORIDE
     Dosage: UNK
     Route: 014
     Dates: start: 20150924
  10. DEXTROSE. [Suspect]
     Active Substance: DEXTROSE
     Indication: SACROILIITIS
     Dosage: 50 %, UNK
     Route: 014
     Dates: start: 20150824
  11. LIDOCAINE HCL [Suspect]
     Active Substance: LIDOCAINE HYDROCHLORIDE
     Dosage: UNK
     Route: 014
     Dates: start: 20160113
  12. LIDOCAINE HCL [Suspect]
     Active Substance: LIDOCAINE HYDROCHLORIDE
     Dosage: UNK
     Route: 014
     Dates: start: 20160627
  13. DEXTROSE. [Suspect]
     Active Substance: DEXTROSE
     Dosage: UNK
     Route: 014
     Dates: start: 20150924
  14. DEXTROSE. [Suspect]
     Active Substance: DEXTROSE
     Dosage: UNK
     Route: 014
     Dates: start: 20160627
  15. LIDOCAINE HCL [Suspect]
     Active Substance: LIDOCAINE HYDROCHLORIDE
     Dosage: UNK
     Route: 014
     Dates: start: 20160419
  16. LIDOCAINE HCL [Suspect]
     Active Substance: LIDOCAINE HYDROCHLORIDE
     Dosage: UNK
     Route: 014
     Dates: start: 20160808
  17. NORCO [Concomitant]
     Active Substance: ACETAMINOPHEN\HYDROCODONE BITARTRATE
     Indication: MUSCULOSKELETAL PAIN
  18. DEXTROSE. [Suspect]
     Active Substance: DEXTROSE
     Dosage: UNK
     Route: 014
     Dates: start: 20151216
  19. DEXTROSE. [Suspect]
     Active Substance: DEXTROSE
     Dosage: UNK
     Route: 014
     Dates: start: 20160223
  20. SIMVASTATIN. [Concomitant]
     Active Substance: SIMVASTATIN
     Indication: HYPERCHOLESTEROLAEMIA
     Dosage: 40 MG, 1X/DAY IN EVENING

REACTIONS (4)
  - Injection site pain [Unknown]
  - Pain [Unknown]
  - Condition aggravated [Unknown]
  - Product use issue [Unknown]

NARRATIVE: CASE EVENT DATE: 20160808
